FAERS Safety Report 7608984-5 (Version None)
Quarter: 2011Q3

REPORT INFORMATION
  Report Type: 
  Country: None (occurrence: None)
  Receive Date: 20110713
  Receipt Date: 20110713
  Transmission Date: 20111222
  Serious: No
  Sender: FDA-Public Use
  Company Number: None

PATIENT
  Age: 75 Year
  Sex: Female
  Weight: 113.3993 kg

DRUGS (1)
  1. DORZOLAMIDE HCL AND TIMOLOL MALEATE [Suspect]
     Indication: INTRAOCULAR PRESSURE INCREASED
     Dosage: ONE DROP CAL 2 TIMES A DAY RT. EYE MY NEW BOTTLE; THIS WAS MY FIRST DROP
     Dates: start: 20110621

REACTIONS (2)
  - EYE IRRITATION [None]
  - EYE PAIN [None]
